FAERS Safety Report 18681790 (Version 1)
Quarter: 2020Q4

REPORT INFORMATION
  Report Type: Spontaneous
  Country: TR (occurrence: TR)
  Receive Date: 20201230
  Receipt Date: 20201230
  Transmission Date: 20210114
  Serious: Yes (Hospitalization, Other)
  Sender: FDA-Public Use
  Company Number: TR-ACCORD-212572

PATIENT
  Age: 65 Year
  Sex: Male

DRUGS (2)
  1. CLOPIDOGREL [Suspect]
     Active Substance: CLOPIDOGREL BISULFATE
     Indication: ANGINA PECTORIS
  2. ACETYLSALICYLIC ACID [Suspect]
     Active Substance: ASPIRIN
     Indication: ACUTE CORONARY SYNDROME

REACTIONS (4)
  - Urinary retention [Not Recovered/Not Resolved]
  - Spinal epidural haematoma [Recovered/Resolved]
  - Quadriparesis [Recovered/Resolved]
  - Spinal cord injury cervical [Recovered/Resolved]
